FAERS Safety Report 16461102 (Version 1)
Quarter: 2019Q2

REPORT INFORMATION
  Report Type: Spontaneous
  Country: FR (occurrence: FR)
  Receive Date: 20190621
  Receipt Date: 20190621
  Transmission Date: 20190711
  Serious: Yes (Hospitalization)
  Sender: FDA-Public Use
  Company Number: FR-SUN PHARMACEUTICAL INDUSTRIES LTD-2019RR-211235

PATIENT
  Age: 59 Year
  Sex: Male
  Weight: 60 kg

DRUGS (9)
  1. AMOXICILLINE SANDOZ 500 MG, GELULE [Suspect]
     Active Substance: AMOXICILLIN
     Indication: PROPHYLAXIS
     Dosage: 2 GRAM, DAILY
     Route: 048
     Dates: start: 20190226, end: 20190426
  2. VELCADE [Suspect]
     Active Substance: BORTEZOMIB
     Indication: PLASMA CELL MYELOMA
     Dosage: 1.3 MILLIGRAM/SQ. METER, DAILY
     Route: 042
     Dates: start: 20190226, end: 20190419
  3. REVLIMID [Suspect]
     Active Substance: LENALIDOMIDE
     Indication: PLASMA CELL MYELOMA
     Dosage: 25 MILLIGRAM, DAILY
     Route: 048
     Dates: start: 20190227, end: 20190423
  4. VALACICLOVIR EVOLUGEN 500 MG, COMPRIME [Suspect]
     Active Substance: VALACYCLOVIR HYDROCHLORIDE
     Indication: PROPHYLAXIS
     Dosage: 500 MILLIGRAM, DAILY
     Route: 048
     Dates: start: 20190226, end: 20190503
  5. BACTRIM [Suspect]
     Active Substance: SULFAMETHOXAZOLE\TRIMETHOPRIM
     Indication: PROPHYLAXIS
     Dosage: 1 DOSAGE FORM, DAILY
     Route: 048
     Dates: start: 20190226, end: 20190427
  6. LOVENOX [Suspect]
     Active Substance: ENOXAPARIN SODIUM
     Indication: PROPHYLAXIS
     Dosage: 4000 INTERNATIONAL UNIT, DAILY
     Route: 058
     Dates: start: 20190227, end: 20190503
  7. TRAMADOL. [Suspect]
     Active Substance: TRAMADOL
     Indication: PAIN
     Dosage: 200 MILLIGRAM, DAILY
     Route: 048
     Dates: start: 201903, end: 201904
  8. ZOMETA [Suspect]
     Active Substance: ZOLEDRONIC ACID
     Indication: PLASMA CELL MYELOMA
     Dosage: 4 MILLIGRAM, MONTHLY
     Route: 042
     Dates: start: 20190226, end: 20190326
  9. DEXAMETHASONE. [Suspect]
     Active Substance: DEXAMETHASONE
     Indication: PLASMA CELL MYELOMA
     Dosage: ()
     Route: 042
     Dates: start: 20190226, end: 20190419

REACTIONS (1)
  - Drug reaction with eosinophilia and systemic symptoms [Recovering/Resolving]

NARRATIVE: CASE EVENT DATE: 20190424
